FAERS Safety Report 6010140-1 (Version None)
Quarter: 2008Q4

REPORT INFORMATION
  Report Type: 
  Country: None (occurrence: None)
  Receive Date: 20081216
  Receipt Date: 20081202
  Transmission Date: 20090506
  Serious: Yes (Death)
  Sender: FDA-Public Use
  Company Number: 2008US003293

PATIENT
  Age: 60 Year
  Sex: Female

DRUGS (5)
  1. PROGRAF [Suspect]
     Indication: RENAL TRANSPLANT
     Dosage: 2 MG, UID/QD, ORAL
     Route: 048
  2. PREDNISOLONE [Concomitant]
  3. MYCOPHENOLATE MOFETIL [Concomitant]
  4. TRIMETOPRIM (TRIMETHOPRIM) [Concomitant]
  5. OMPRAZOL (OMEPRAZOLE SODIUM) [Concomitant]

REACTIONS (1)
  - KIDNEY INFECTION [None]
